FAERS Safety Report 10268243 (Version 2)
Quarter: 2014Q2

REPORT INFORMATION
  Report Type: Report from Study
  Country: BR (occurrence: BR)
  Receive Date: 20140630
  Receipt Date: 20140630
  Transmission Date: 20141212
  Serious: Yes (Other)
  Sender: FDA-Public Use
  Company Number: PHHY2013BR130642

PATIENT
  Age: 49 Year
  Sex: Female
  Weight: 73 kg

DRUGS (12)
  1. SANDOSTATIN LAR [Suspect]
     Indication: ACROMEGALY
     Dosage: 60 MG, EVERY 28 DAYS
  2. SANDOSTATIN LAR [Suspect]
     Dosage: 40 MG, EVERY 28 DAYS
  3. METFORMIN [Suspect]
     Indication: DIABETES MELLITUS
     Dosage: 4 DF, UNK
  4. DOSTINEX [Suspect]
     Indication: PITUITARY TUMOUR
     Dosage: UNK UKN, UNK
  5. DOSTINEX [Suspect]
     Indication: ACROMEGALY
     Dosage: 10 MG, 3 TIMES WEEKLY
  6. DOSTINEX [Suspect]
     Dosage: 5 MG, 3 TIMES WEEKLY
     Dates: start: 201404
  7. DOSTINEX [Suspect]
     Dosage: UNK UKN, UNK
  8. SOMATULINE LA [Suspect]
     Indication: ACROMEGALY
     Dosage: 120 MG, EVERY 28 DAYS
  9. BAGREN [Concomitant]
  10. TENSALIV [Concomitant]
     Indication: HYPERTENSION
     Dosage: 2 DF, DAILY
  11. NATRILIX [Concomitant]
     Indication: HYPERTENSION
     Dosage: 1 DF, DAILY
  12. GLIMEPIRIDE [Concomitant]
     Indication: DIABETES MELLITUS
     Dosage: 1 DF, DAILY

REACTIONS (11)
  - Diabetes mellitus [Unknown]
  - Blood growth hormone increased [Not Recovered/Not Resolved]
  - Insulin-like growth factor increased [Not Recovered/Not Resolved]
  - Cholelithiasis [Recovered/Resolved]
  - Anaemia [Unknown]
  - Somnolence [Not Recovered/Not Resolved]
  - Laziness [Unknown]
  - Weight increased [Unknown]
  - Gastric disorder [Unknown]
  - Fatigue [Not Recovered/Not Resolved]
  - Diarrhoea [Recovered/Resolved]
